FAERS Safety Report 7454564-4 (Version None)
Quarter: 2011Q2

REPORT INFORMATION
  Report Type: 
  Country: None (occurrence: None)
  Receive Date: 20110503
  Receipt Date: 20110321
  Transmission Date: 20111010
  Serious: Yes (Other)
  Sender: FDA-Public Use
  Company Number: US-BAYER-2010-002067

PATIENT
  Sex: Female
  Weight: 81.633 kg

DRUGS (6)
  1. YASMIN [Suspect]
     Indication: MENSTRUATION IRREGULAR
  2. OCELLA [Suspect]
     Indication: MENSTRUATION IRREGULAR
  3. OCELLA [Suspect]
     Indication: PREMENSTRUAL SYNDROME
     Dosage: UNK
     Dates: start: 20040101, end: 20080101
  4. NAPROXEN [Concomitant]
  5. YASMIN [Suspect]
     Indication: PREMENSTRUAL SYNDROME
     Dosage: UNK
     Dates: start: 20040101, end: 20080101
  6. IBUPROFEN [Concomitant]

REACTIONS (2)
  - GALLBLADDER INJURY [None]
  - CHOLECYSTITIS [None]
